FAERS Safety Report 7396513-3 (Version None)
Quarter: 2011Q2

REPORT INFORMATION
  Report Type: 
  Country: None (occurrence: None)
  Receive Date: 20110406
  Receipt Date: 20110331
  Transmission Date: 20111010
  Serious: Yes (Other)
  Sender: FDA-Public Use
  Company Number: US-BRISTOL-MYERS SQUIBB COMPANY-15549207

PATIENT
  Age: 69 Year
  Sex: Male

DRUGS (3)
  1. ONGLYZA [Suspect]
     Indication: DIABETES MELLITUS
     Route: 048
     Dates: start: 20101116
  2. AMARYL [Concomitant]
  3. METFORMIN [Concomitant]

REACTIONS (6)
  - HYPOAESTHESIA [None]
  - INFLUENZA [None]
  - PAIN [None]
  - OEDEMA PERIPHERAL [None]
  - FATIGUE [None]
  - BRONCHITIS [None]
